FAERS Safety Report 16249871 (Version 11)
Quarter: 2019Q3

REPORT INFORMATION
  Report Type: Report from Study
  Country: JP (occurrence: JP)
  Receive Date: 20190429
  Receipt Date: 20190821
  Transmission Date: 20191004
  Serious: Yes (Hospitalization, Other)
  Sender: FDA-Public Use
  Company Number: JP-ASTELLAS-2017JP023274

PATIENT
  Age: 76 Year
  Sex: Male

DRUGS (36)
  1. RANMARK [Concomitant]
     Active Substance: DENOSUMAB
     Indication: METASTASES TO BONE
     Dosage: 120 MG, EVERY 3 MONTHS ONE AT A TIME
     Route: 058
     Dates: start: 20170426
  2. IOMERON [Concomitant]
     Active Substance: IOMEPROL
     Indication: COMPUTERISED TOMOGRAM
     Dosage: UNK UNK, UNKNOWN FREQ.
     Route: 042
     Dates: start: 20180606, end: 20180606
  3. LACTEC                             /00490001/ [Concomitant]
     Indication: FLUID REPLACEMENT
     Dosage: UNK UNK, UNKNOWN FREQ.
     Route: 041
     Dates: start: 20171130, end: 20171202
  4. RED CELLS CONCENTRATES-LEUKOCYTES REDUCED [Concomitant]
     Active Substance: HUMAN RED BLOOD CELL
     Indication: SURGERY
     Dosage: UNK UNK, UNKNOWN FREQ.
     Route: 041
     Dates: start: 20171130, end: 20171130
  5. VESICARE [Concomitant]
     Active Substance: SOLIFENACIN SUCCINATE
     Indication: POLLAKIURIA
     Dosage: 5 MG, ONCE DAILY, AFTER DINNER
     Route: 048
     Dates: start: 20171227, end: 20190621
  6. MOHRUS [Concomitant]
     Active Substance: KETOPROFEN
     Indication: BACK PAIN
     Dosage: UNK UNK, UNKNOWN FREQ.
     Route: 062
     Dates: start: 20180314, end: 20180606
  7. ENZALUTAMIDE [Suspect]
     Active Substance: ENZALUTAMIDE
     Indication: HORMONE-REFRACTORY PROSTATE CANCER
     Route: 048
     Dates: start: 20171102, end: 20190415
  8. SENNOSIDE                          /00571901/ [Concomitant]
     Active Substance: SENNOSIDES A AND B
     Indication: CONSTIPATION
     Route: 048
     Dates: start: 20171202, end: 20171210
  9. MYSLEE [Concomitant]
     Active Substance: ZOLPIDEM TARTRATE
     Indication: POLLAKIURIA
     Dosage: 10 MG, ONCE DAILY, BEFORE BEDTIME
     Route: 048
     Dates: start: 20181226, end: 20181228
  10. IOPAMIRON [Concomitant]
     Active Substance: IOPAMIDOL
     Dosage: UNK UNK, UNKNOWN FREQ.
     Route: 041
     Dates: start: 20181205, end: 20181205
  11. IOPAMIRON [Concomitant]
     Active Substance: IOPAMIDOL
     Dosage: UNK UNK, UNKNOWN FREQ.
     Route: 041
     Dates: start: 20190612, end: 20190612
  12. MICAMLO [Concomitant]
     Active Substance: AMLODIPINE BESYLATE\TELMISARTAN
     Indication: HYPERTENSION
     Dosage: UNK UNK, UNKNOWN FREQ.
     Route: 048
     Dates: start: 20190221, end: 20190412
  13. FLUTAMIDE. [Concomitant]
     Active Substance: FLUTAMIDE
     Indication: HORMONE-REFRACTORY PROSTATE CANCER
     Dosage: UNK UNK, UNKNOWN FREQ.
     Route: 048
     Dates: start: 20190525, end: 20190529
  14. DENOTAS [Concomitant]
     Active Substance: CALCIUM CARBONATE\CHOLECALCIFEROL\MAGNESIUM CARBONATE
     Indication: PROPHYLAXIS
     Dosage: 1 DF, ONCE DAILY, AFTER BREAKFAST
     Route: 048
     Dates: start: 20160212
  15. FERROUS CITRATE [Concomitant]
     Active Substance: FERROUS CITRATE
     Indication: IRON DEFICIENCY ANAEMIA
     Route: 048
     Dates: end: 20190412
  16. FERROUS CITRATE [Concomitant]
     Active Substance: FERROUS CITRATE
     Dosage: 50 MG, ONCE DAILY, AFTER BREAKFAST
     Route: 048
     Dates: start: 20190524
  17. CLEAR BONE [Concomitant]
     Indication: BONE SCAN
     Dosage: UNK UNK, UNKNOWN FREQ.
     Route: 042
     Dates: start: 20171017, end: 20190605
  18. IOMERON [Concomitant]
     Active Substance: IOMEPROL
     Indication: COMPUTERISED TOMOGRAM
     Dosage: UNK UNK, UNKNOWN FREQ.
     Route: 042
     Dates: start: 20171019, end: 20171019
  19. LOXOPROFEN NA [Concomitant]
     Active Substance: LOXOPROFEN SODIUM
     Indication: PROCEDURAL PAIN
     Dosage: UNK UNK, UNKNOWN FREQ.
     Route: 061
     Dates: start: 20171202, end: 20171210
  20. SENNOSIDE                          /00571901/ [Concomitant]
     Active Substance: SENNOSIDES A AND B
     Dosage: UNK UNK, UNKNOWN FREQ.
     Route: 048
     Dates: start: 20190524, end: 20190621
  21. ZOLADEX LA [Concomitant]
     Active Substance: GOSERELIN ACETATE
     Indication: HORMONE-REFRACTORY PROSTATE CANCER
     Dosage: 10.8 MG, EVERY 3 MONTHS ONE AT A TIME
     Route: 058
     Dates: start: 20170426
  22. TERAMURO [Concomitant]
     Indication: HYPERTENSION
     Dosage: 1 TABLET, ONCE DAILY
     Route: 048
     Dates: end: 20190220
  23. FENTANYL                           /00174602/ [Concomitant]
     Active Substance: FENTANYL
     Indication: ANAESTHESIA PROCEDURE
     Dosage: UNK UNK, UNKNOWN FREQ.
     Route: 042
     Dates: start: 20171130, end: 20171130
  24. SENNOSIDE                          /00571901/ [Concomitant]
     Active Substance: SENNOSIDES A AND B
     Indication: CONSTIPATION
     Dosage: UNK UNK, UNKNOWN FREQ.
     Route: 048
  25. ISALON [Concomitant]
     Active Substance: UNSPECIFIED INGREDIENT
     Indication: GASTRITIS PROPHYLAXIS
     Dosage: UNK UNK, UNKNOWN FREQ.
     Route: 048
     Dates: start: 20180314, end: 20180606
  26. IOMERON [Concomitant]
     Active Substance: IOMEPROL
     Indication: ANGIOGRAM
     Dosage: UNK UNK, UNKNOWN FREQ.
     Route: 042
     Dates: start: 20171130, end: 20171130
  27. REMIFENTANIL                       /01229902/ [Concomitant]
     Active Substance: REMIFENTANIL HYDROCHLORIDE
     Indication: ANAESTHESIA PROCEDURE
     Dosage: UNK UNK, UNKNOWN FREQ.
     Route: 041
     Dates: start: 20171130, end: 20171130
  28. SENNOSIDE                          /00571901/ [Concomitant]
     Active Substance: SENNOSIDES A AND B
     Dosage: UNK UNK, UNKNOWN FREQ.
     Route: 048
     Dates: start: 20190416, end: 20190416
  29. CRAVIT [Concomitant]
     Active Substance: LEVOFLOXACIN
     Indication: HAEMATURIA
     Route: 048
     Dates: start: 20180221, end: 20180225
  30. HARNAL [Concomitant]
     Active Substance: TAMSULOSIN HYDROCHLORIDE
     Indication: DYSURIA
     Dosage: UNK UNK, UNKNOWN FREQ.
     Route: 048
     Dates: start: 20180314, end: 20190123
  31. LOXOPROFEN EMEC [Concomitant]
     Active Substance: LOXOPROFEN
     Indication: BACK PAIN
     Dosage: UNK UNK, UNKNOWN FREQ.
     Route: 048
     Dates: start: 20180314, end: 20180606
  32. LOXONIN [Concomitant]
     Active Substance: LOXOPROFEN SODIUM
     Indication: BACK PAIN
     Dosage: UNK UNK, UNKNOWN FREQ.
     Route: 048
     Dates: start: 20181205, end: 20181226
  33. SELBEX [Concomitant]
     Active Substance: TEPRENONE
     Indication: BACK PAIN
     Dosage: UNK UNK, UNKNOWN FREQ.
     Route: 048
     Dates: start: 20181205, end: 20181226
  34. CEFAZOLIN SODIUM. [Concomitant]
     Active Substance: CEFAZOLIN SODIUM
     Indication: INFECTION PROPHYLAXIS
     Dosage: UNK UNK, UNKNOWN FREQ.
     Route: 041
     Dates: start: 20171130, end: 20171201
  35. IOPAMIRON [Concomitant]
     Active Substance: IOPAMIDOL
     Indication: COMPUTERISED TOMOGRAM
     Dosage: UNK UNK, UNKNOWN FREQ.
     Route: 041
     Dates: start: 20171205, end: 20171205
  36. MICAMLO [Concomitant]
     Active Substance: AMLODIPINE BESYLATE\TELMISARTAN
     Dosage: 1 DF, ONCE DAILY, AFTER BREAKFAST
     Route: 048
     Dates: start: 20190524

REACTIONS (13)
  - Haematuria [Recovered/Resolved]
  - Fall [Recovered/Resolved]
  - Constipation [Recovered/Resolved]
  - Constipation [Recovered/Resolved]
  - Pollakiuria [Not Recovered/Not Resolved]
  - Back pain [Recovered/Resolved]
  - Back pain [Recovered/Resolved]
  - Loss of consciousness [Recovered/Resolved]
  - Loss of consciousness [Recovered/Resolved]
  - Aortic stent insertion [Recovered/Resolved]
  - Somnolence [Recovered/Resolved]
  - Dysuria [Recovered/Resolved]
  - Injection site extravasation [Recovered/Resolved]

NARRATIVE: CASE EVENT DATE: 20171129
